FAERS Safety Report 9233146 (Version 5)
Quarter: 2013Q4

REPORT INFORMATION
  Report Type: Report from Study
  Country: BR (occurrence: BR)
  Receive Date: 20130416
  Receipt Date: 20131219
  Transmission Date: 20140711
  Serious: Yes (Other)
  Sender: FDA-Public Use
  Company Number: PHHY2013BR036030

PATIENT
  Age: 77 Year
  Sex: Male

DRUGS (4)
  1. FORASEQ [Suspect]
     Indication: LUNG NEOPLASM MALIGNANT
     Dosage: 1 DF, BID
     Route: 055
  2. BAMIFIX [Concomitant]
     Dosage: 1 DF, QD
     Route: 048
  3. LOSARTAN POTASSIUM [Concomitant]
     Indication: HYPERTENSION
     Dosage: 1 DF, DAILY
     Route: 048
  4. HYDROCHLOROTHIAZIDE [Concomitant]
     Indication: POLYURIA
     Dosage: HALF TABLET DAILY
     Route: 048

REACTIONS (3)
  - Emphysema [Recovered/Resolved]
  - Wrong technique in drug usage process [Unknown]
  - Incorrect dose administered [Recovering/Resolving]
